FAERS Safety Report 7666968-5 (Version None)
Quarter: 2011Q3

REPORT INFORMATION
  Report Type: 
  Country: None (occurrence: None)
  Receive Date: 20110806
  Receipt Date: 20110420
  Transmission Date: 20111222
  Serious: No
  Sender: FDA-Public Use
  Company Number: US-ABBOTT-11P-163-0721697-00

PATIENT
  Sex: Male
  Weight: 86.26 kg

DRUGS (5)
  1. ASPIRIN [Concomitant]
     Indication: PROPHYLAXIS
  2. JANUMET [Concomitant]
     Indication: DIABETES MELLITUS
  3. TRIAMTERENE AND HYDROCHLOROTHIAZIDE [Concomitant]
     Indication: HYPERTENSION
  4. NIASPAN [Suspect]
     Indication: BLOOD CHOLESTEROL INCREASED
     Dates: start: 20110410, end: 20110419
  5. XFORGE [Concomitant]
     Indication: HYPERTENSION

REACTIONS (4)
  - APHONIA [None]
  - MUSCULAR WEAKNESS [None]
  - FLUSHING [None]
  - COUGH [None]
